FAERS Safety Report 11977875 (Version 1)
Quarter: 2016Q1

REPORT INFORMATION
  Report Type: Spontaneous
  Country: US (occurrence: US)
  Receive Date: 20160129
  Receipt Date: 20160129
  Transmission Date: 20160526
  Serious: No
  Sender: FDA-Public Use
  Company Number: US-FRESENIUS KABI-FK201500589

PATIENT

DRUGS (2)
  1. DYSPORT [Suspect]
     Active Substance: ABOBOTULINUMTOXINA
     Indication: SURGERY
     Route: 042
  2. SODIUM CHLORIDE 0.9% SOLUTION FOR INFUSION [Suspect]
     Active Substance: SODIUM CHLORIDE
     Indication: SURGERY
     Route: 042

REACTIONS (1)
  - Injection site pain [Unknown]
